FAERS Safety Report 5710185-2 (Version None)
Quarter: 2008Q2

REPORT INFORMATION
  Report Type: 
  Country: None (occurrence: None)
  Receive Date: 20080418
  Receipt Date: 20071213
  Transmission Date: 20081010
  Serious: No
  Sender: FDA-Public Use
  Company Number: US-ASTRAZENECA-2007UW28433

PATIENT
  Age: 35 Year
  Sex: Female
  Weight: 106.8 kg

DRUGS (7)
  1. TOPROL-XL [Suspect]
     Route: 048
  2. OPANA [Concomitant]
     Indication: BACK PAIN
     Dates: start: 20071106, end: 20071113
  3. PERCOCET [Concomitant]
     Indication: OSTEOARTHRITIS
     Route: 048
     Dates: start: 20060101, end: 20071104
  4. CARDIZEM [Concomitant]
     Indication: TACHYCARDIA
     Route: 048
     Dates: start: 20070101, end: 20071104
  5. LYRICA [Concomitant]
     Indication: BACK PAIN
     Route: 048
     Dates: start: 20060101
  6. ZANAFLEX [Concomitant]
     Indication: BACK PAIN
     Route: 048
     Dates: start: 20060101
  7. KLONOPIN [Concomitant]
     Indication: ANXIETY
     Route: 048
     Dates: start: 20050101

REACTIONS (1)
  - HYPERSENSITIVITY [None]
